FAERS Safety Report 9688354 (Version 2)
Quarter: 2013Q4

REPORT INFORMATION
  Report Type: Spontaneous
  Country: FR (occurrence: FR)
  Receive Date: 20131114
  Receipt Date: 20131114
  Transmission Date: 20140711
  Serious: Yes (Hospitalization)
  Sender: FDA-Public Use
  Company Number: FR-SA-POMP-1000350

PATIENT
  Age: 24 Month
  Sex: Male
  Weight: 18 kg

DRUGS (1)
  1. MYOZYME [Suspect]
     Indication: GLYCOGEN STORAGE DISEASE TYPE II
     Dosage: 30 MG/KG, Q2W
     Route: 042
     Dates: start: 200801

REACTIONS (4)
  - Infusion site extravasation [Recovered/Resolved]
  - Injection site oedema [Recovered/Resolved]
  - Drug administration error [Recovered/Resolved]
  - Localised oedema [Recovered/Resolved]
